FAERS Safety Report 5109570-1 (Version None)
Quarter: 2006Q3

REPORT INFORMATION
  Report Type: 
  Country: None (occurrence: None)
  Receive Date: 20060918
  Receipt Date: 20060829
  Transmission Date: 20061208
  Serious: Yes (Other)
  Sender: FDA-Public Use
  Company Number: BR200609000166

PATIENT
  Age: 60 Year
  Sex: Female
  Weight: 53 kg

DRUGS (5)
  1. FORTEO [Suspect]
     Indication: OSTEOPOROSIS
     Dosage: 20 UG, DAILY (1/D), SUBCUTANEOUS
     Route: 058
     Dates: start: 20060801
  2. FORTEO [Concomitant]
  3. LIVIAL [Concomitant]
  4. ATENOLOL W/CHLORTALIDONE (ATENOLOL, CHLORTALIDONE) [Concomitant]
  5. LESCOL XL [Concomitant]

REACTIONS (4)
  - ARRHYTHMIA [None]
  - BLOOD PRESSURE DECREASED [None]
  - FEELING HOT [None]
  - NAUSEA [None]
